FAERS Safety Report 10238359 (Version 2)
Quarter: 2014Q4

REPORT INFORMATION
  Report Type: Spontaneous
  Country: US (occurrence: US)
  Receive Date: 20140616
  Receipt Date: 20141014
  Transmission Date: 20150528
  Serious: Yes (Other)
  Sender: FDA-Public Use
  Company Number: US-BAYER-2014-087325

PATIENT
  Age: 31 Year
  Sex: Female
  Weight: 56.2 kg

DRUGS (7)
  1. CLINDAMYCIN [Concomitant]
     Active Substance: CLINDAMYCIN\CLINDAMYCIN PHOSPHATE
     Dosage: 1 %, BID
     Route: 061
     Dates: start: 20090513
  2. ALOE VERA [Concomitant]
     Active Substance: ALOE VERA LEAF
  3. ROWASA [Concomitant]
     Active Substance: MESALAMINE
  4. YAZ [Suspect]
     Active Substance: DROSPIRENONE\ETHINYL ESTRADIOL
     Indication: CONTRACEPTION
     Dosage: UNK
     Route: 048
     Dates: start: 2009
  5. BALSALAZIDE SODIUM [Concomitant]
     Active Substance: BALSALAZIDE
     Dosage: 750 MG, TID
     Route: 048
     Dates: start: 20081113
  6. HYDROCORTISONE W/PRAMOXINE [Concomitant]
  7. MESALAMINE. [Concomitant]
     Active Substance: MESALAMINE

REACTIONS (3)
  - Injury [None]
  - Pain [None]
  - Deep vein thrombosis [None]

NARRATIVE: CASE EVENT DATE: 2009
